FAERS Safety Report 5731311-5 (Version None)
Quarter: 2008Q2

REPORT INFORMATION
  Report Type: 
  Country: None (occurrence: None)
  Receive Date: 20080505
  Receipt Date: 20080422
  Transmission Date: 20081010
  Serious: Yes (Other)
  Sender: FDA-Public Use
  Company Number: 2008003420

PATIENT
  Age: 46 Year
  Sex: Male
  Weight: 72.6 kg

DRUGS (1)
  1. ROGAINE 5 [Suspect]
     Indication: ALOPECIA
     Dosage: 1/2 CAPFUL, TOPICAL
     Route: 061
     Dates: start: 20071124

REACTIONS (3)
  - DROOLING [None]
  - FACIAL PALSY [None]
  - STRESS [None]
